FAERS Safety Report 10520023 (Version 3)
Quarter: 2014Q4

REPORT INFORMATION
  Report Type: Report from Study
  Country: JP (occurrence: JP)
  Receive Date: 20141015
  Receipt Date: 20141223
  Transmission Date: 20150528
  Serious: Yes (Other)
  Sender: FDA-Public Use
  Company Number: JP-BAYER-2014-148883

PATIENT
  Age: 57 Year
  Sex: Male

DRUGS (8)
  1. NEXAVAR [Suspect]
     Active Substance: SORAFENIB
     Indication: PAPILLARY THYROID CANCER
     Dosage: DAILY DOSE 200 MG
     Route: 048
     Dates: start: 20140908
  2. NEXAVAR [Suspect]
     Active Substance: SORAFENIB
     Indication: PAPILLARY THYROID CANCER
     Dosage: DAILY DOSE 800 MG
     Route: 048
     Dates: start: 20140714, end: 20140729
  3. NEXAVAR [Suspect]
     Active Substance: SORAFENIB
     Indication: PAPILLARY THYROID CANCER
     Dosage: DAILY DOSE 400 MG
     Route: 048
     Dates: start: 20140907, end: 20140907
  4. THYRADIN S [Concomitant]
     Active Substance: LEVOTHYROXINE SODIUM
     Indication: PAPILLARY THYROID CANCER
     Dosage: DAILY DOSE 250 ?G
     Route: 048
  5. NORVASC [Concomitant]
     Active Substance: AMLODIPINE BESYLATE
     Dosage: DAILY DOSE 7.5 MG
     Route: 048
  6. NEXAVAR [Suspect]
     Active Substance: SORAFENIB
     Indication: PAPILLARY THYROID CANCER
     Dosage: DAILY DOSE 400 MG
     Route: 048
     Dates: start: 20140901, end: 20140903
  7. HIRUDOID [Concomitant]
     Active Substance: GLYCOSAMINOGLYCANS
     Indication: PROPHYLAXIS
     Dosage: UNK
     Route: 061
     Dates: start: 20140714
  8. NEXAVAR [Suspect]
     Active Substance: SORAFENIB
     Indication: PAPILLARY THYROID CANCER
     Dosage: DAILY DOSE 800 MG
     Route: 048
     Dates: start: 20140811, end: 20140813

REACTIONS (7)
  - Pyrexia [Recovered/Resolved]
  - Uveitis [Not Recovered/Not Resolved]
  - Pyrexia [Recovered/Resolved]
  - Pyrexia [Recovered/Resolved]
  - Pyrexia [Recovered/Resolved]
  - Infection [Not Recovered/Not Resolved]
  - Pyrexia [Not Recovered/Not Resolved]

NARRATIVE: CASE EVENT DATE: 20140729
